FAERS Safety Report 4556941-8 (Version None)
Quarter: 2005Q1

REPORT INFORMATION
  Report Type: 
  Country: None (occurrence: None)
  Receive Date: 20050114
  Receipt Date: 20050106
  Transmission Date: 20050727
  Serious: Yes (Hospitalization, Other)
  Sender: FDA-Public Use
  Company Number: USA-2003-0009007

PATIENT
  Age: 47 Year
  Sex: Male
  Weight: 92.9874 kg

DRUGS (21)
  1. OXYCONTIN [Suspect]
     Indication: PAIN
     Dates: start: 19971129
  2. OXYIR CAPSULES (OXYCODONE HYDROCHLORIDE) IR CAPSULE [Concomitant]
  3. THEO-DUR [Concomitant]
  4. PAXIL [Concomitant]
  5. PREDNISONE [Concomitant]
  6. AUGMENTIN '125' [Concomitant]
  7. NAPROXEN [Concomitant]
  8. CLARITIN [Concomitant]
  9. GABAPENTIN [Concomitant]
  10. THEO-DUR [Concomitant]
  11. PAXIL [Concomitant]
  12. AMARYL [Concomitant]
  13. LASIX [Concomitant]
  14. AMITRIPTYLINE HCL [Concomitant]
  15. LIPITOR [Concomitant]
  16. ACCUPRIL [Concomitant]
  17. BETOTOPIC-S [Concomitant]
  18. XALATAN [Concomitant]
  19. FOSAMAX [Concomitant]
  20. MYLANTA (SIMETICONE, ALUMINIUM HYDROCHLORIDE GEL, DRIED, MAGNESIUM HYD [Concomitant]
  21. VALIUM [Concomitant]

REACTIONS (38)
  - ABDOMINAL PAIN UPPER [None]
  - ANAEMIA POSTOPERATIVE [None]
  - ANGIOPATHY [None]
  - ARTHRALGIA [None]
  - ASTHMA [None]
  - BACK PAIN [None]
  - BLINDNESS [None]
  - BLOOD PRESSURE INCREASED [None]
  - BRONCHITIS ACUTE [None]
  - BUTTOCK PAIN [None]
  - CELLULITIS [None]
  - CHEST DISCOMFORT [None]
  - CLOSTRIDIAL INFECTION [None]
  - CONDITION AGGRAVATED [None]
  - DECREASED APPETITE [None]
  - DEPRESSION [None]
  - DRUG ABUSER [None]
  - DRUG DEPENDENCE [None]
  - DRUG INEFFECTIVE [None]
  - DRUG WITHDRAWAL SYNDROME [None]
  - EMOTIONAL DISTRESS [None]
  - ERECTILE DYSFUNCTION [None]
  - HYPOAESTHESIA [None]
  - ILEUS PARALYTIC [None]
  - IMPAIRED HEALING [None]
  - INTERVERTEBRAL DISC PROTRUSION [None]
  - LOCALISED INFECTION [None]
  - MEDIASTINAL DISORDER [None]
  - NECK PAIN [None]
  - OEDEMA PERIPHERAL [None]
  - OVERDOSE [None]
  - PAIN [None]
  - SKIN ULCER [None]
  - SPINAL OSTEOARTHRITIS [None]
  - THROMBOPHLEBITIS [None]
  - TOOTHACHE [None]
  - UPPER RESPIRATORY TRACT INFECTION [None]
  - VISUAL ACUITY REDUCED [None]
